FAERS Safety Report 12639878 (Version 14)
Quarter: 2020Q3

REPORT INFORMATION
  Report Type: Spontaneous
  Country: US (occurrence: US)
  Receive Date: 20160810
  Receipt Date: 20200817
  Transmission Date: 20201102
  Serious: Yes (Congenital Anomaly, Other)
  Sender: FDA-Public Use
  Company Number: PHHY2015US131781

PATIENT
  Sex: Male

DRUGS (2)
  1. ZOFRAN [Suspect]
     Active Substance: ONDANSETRON HYDROCHLORIDE
     Indication: FOETAL EXPOSURE DURING PREGNANCY
     Dosage: MOTHER^S DOSE: 4 MG, UNK
     Route: 064
  2. ONDANSETRON HYDROCHLORIDE. [Suspect]
     Active Substance: ONDANSETRON HYDROCHLORIDE
     Indication: FOETAL EXPOSURE DURING PREGNANCY
     Dosage: MOTHER^S DOSE: 4 MG, UNK
     Route: 064

REACTIONS (49)
  - Nose deformity [Unknown]
  - Conjunctivitis [Unknown]
  - Abdominal pain [Unknown]
  - Abdominal pain upper [Unknown]
  - Diarrhoea [Recovered/Resolved]
  - Nasopharyngitis [Unknown]
  - Head injury [Unknown]
  - Productive cough [Unknown]
  - Haematocrit increased [Unknown]
  - Upper respiratory tract infection [Unknown]
  - Speech disorder [Unknown]
  - Constipation [Unknown]
  - Basophil count increased [Unknown]
  - Platelet count decreased [Unknown]
  - Ear malformation [Unknown]
  - Ear infection [Unknown]
  - Obesity [Unknown]
  - Coordination abnormal [Unknown]
  - Craniofacial deformity [Unknown]
  - Developmental delay [Unknown]
  - Intellectual disability [Unknown]
  - Decreased appetite [Unknown]
  - Nasal congestion [Unknown]
  - Poor feeding infant [Unknown]
  - Rhinorrhoea [Unknown]
  - Trisomy 21 [Unknown]
  - Secretion discharge [Unknown]
  - Pain [Unknown]
  - Gastroenteritis [Unknown]
  - Ear pain [Unknown]
  - Hypoacusis [Unknown]
  - Pharyngitis streptococcal [Unknown]
  - Cleft lip and palate [Unknown]
  - Rash [Unknown]
  - Dyspnoea [Unknown]
  - Haemoglobin increased [Unknown]
  - Eustachian tube dysfunction [Unknown]
  - Breath odour [Unknown]
  - Scar [Unknown]
  - Cough [Unknown]
  - Vomiting [Unknown]
  - Red blood cell count increased [Unknown]
  - Foetal exposure during pregnancy [Unknown]
  - Otitis media chronic [Unknown]
  - Croup infectious [Unknown]
  - Emotional distress [Unknown]
  - Alopecia areata [Unknown]
  - Gingivitis [Unknown]
  - Oropharyngeal pain [Unknown]
